FAERS Safety Report 7499033-0 (Version None)
Quarter: 2011Q2

REPORT INFORMATION
  Report Type: 
  Country: None (occurrence: None)
  Receive Date: 20110524
  Receipt Date: 20110516
  Transmission Date: 20111010
  Serious: Yes (Other)
  Sender: FDA-Public Use
  Company Number: US-JNJFOC-20110307442

PATIENT
  Age: 82 Year
  Sex: Female
  Weight: 68.04 kg

DRUGS (17)
  1. ACETAMINOPHEN [Suspect]
     Indication: HEADACHE
     Dosage: 1000MG 3-4 TIMES DAY
     Route: 048
     Dates: start: 20110101, end: 20110314
  2. LEVOTHYROXINE SODIUM [Concomitant]
     Indication: THYROIDECTOMY
     Route: 048
     Dates: start: 19990101
  3. VITAMIN D [Concomitant]
     Indication: ROUTINE HEALTH MAINTENANCE
     Route: 048
  4. VALSARTAN W/ HYDROCHLOROTHIAZIDE [Concomitant]
     Indication: HYPERTENSION
     Dosage: 81MG/25MG, 8-10 YEARS
     Route: 048
  5. CALCIUM CARBONATE [Concomitant]
     Indication: OSTEOPOROSIS
     Route: 048
  6. OMEPRAZOLE [Concomitant]
     Indication: GASTROOESOPHAGEAL REFLUX DISEASE
     Route: 048
  7. COENZYM Q10 [Concomitant]
     Indication: ROUTINE HEALTH MAINTENANCE
     Route: 048
  8. ACETAMINOPHEN [Suspect]
     Route: 048
  9. LEXAPRO [Suspect]
     Dosage: 8-10 YEARS
     Route: 048
  10. LEXAPRO [Suspect]
     Indication: FIBROMYALGIA
     Route: 048
  11. OCUVITE NOS [Concomitant]
     Indication: RETINAL DISORDER
     Dosage: 6-7 YEARS
     Route: 048
  12. ASPIRIN [Concomitant]
     Indication: CARDIAC DISORDER
     Route: 048
  13. ATENOLOL [Concomitant]
     Indication: HYPERTENSION
     Route: 048
  14. VITAMIN TAB [Concomitant]
     Indication: ROUTINE HEALTH MAINTENANCE
     Route: 048
  15. METHYLPREDNISOLONE [Concomitant]
     Indication: HEADACHE
     Route: 048
     Dates: start: 20110225
  16. FISH OIL [Concomitant]
     Indication: BLOOD CHOLESTEROL
     Route: 048
  17. LOVAZA [Concomitant]
     Indication: BLOOD CHOLESTEROL
     Route: 048

REACTIONS (6)
  - OCCIPITAL NEURALGIA [None]
  - HEADACHE [None]
  - INCORRECT DRUG ADMINISTRATION DURATION [None]
  - BLOOD PRESSURE INCREASED [None]
  - HALLUCINATION [None]
  - DECREASED APPETITE [None]
